FAERS Safety Report 7781596-9 (Version None)
Quarter: 2011Q3

REPORT INFORMATION
  Report Type: 
  Country: None (occurrence: None)
  Receive Date: 20110927
  Receipt Date: 20110513
  Transmission Date: 20111222
  Serious: No
  Sender: FDA-Public Use
  Company Number: US-BAYER-2011-042898

PATIENT
  Age: 57 Year
  Sex: Female
  Weight: 57 kg

DRUGS (4)
  1. ALEVE (CAPLET) [Suspect]
     Dosage: 1 U, ONCE
     Route: 048
     Dates: start: 20110511, end: 20110512
  2. SYNTHROID [Concomitant]
  3. VIVELLE [Concomitant]
  4. VITAMIN D [Concomitant]

REACTIONS (1)
  - POOR QUALITY SLEEP [None]
